FAERS Safety Report 23869567 (Version 1)
Quarter: 2024Q2

REPORT INFORMATION
  Report Type: Spontaneous
  Country: US (occurrence: US)
  Receive Date: 20240517
  Receipt Date: 20240517
  Transmission Date: 20240715
  Serious: No
  Sender: FDA-Public Use
  Company Number: US-Stemline Therapeutics, Inc.-2024ST002598

PATIENT
  Age: 68 Year
  Sex: Female

DRUGS (7)
  1. ORSERDU [Suspect]
     Active Substance: ELACESTRANT
     Indication: Product used for unknown indication
     Route: 048
     Dates: start: 20240319
  2. METFORMIN HYDROCHLORIDE [Concomitant]
     Active Substance: METFORMIN HYDROCHLORIDE
     Indication: Product used for unknown indication
     Route: 048
  3. SYNTHROID [Concomitant]
     Active Substance: LEVOTHYROXINE SODIUM
     Indication: Product used for unknown indication
     Route: 048
  4. CVS Calcium 600 Vitamin D3 [Concomitant]
     Indication: Product used for unknown indication
     Route: 048
  5. CO-Q 10 Omega-3 Fish Oil [Concomitant]
     Indication: Product used for unknown indication
     Route: 048
  6. Systane Balance Ophthalmic Solution [Concomitant]
     Indication: Product used for unknown indication
     Route: 047
  7. Daily Multiple Vitamins [Concomitant]
     Indication: Product used for unknown indication
     Route: 048

REACTIONS (2)
  - Tumour marker increased [Not Recovered/Not Resolved]
  - Blood cholesterol increased [Not Recovered/Not Resolved]
